FAERS Safety Report 11215384 (Version 1)
Quarter: 2015Q2

REPORT INFORMATION
  Report Type: Spontaneous
  Country: US (occurrence: US)
  Receive Date: 20150624
  Receipt Date: 20150624
  Transmission Date: 20150821
  Serious: No
  Sender: FDA-Public Use
  Company Number: US-BAYER-2015-357275

PATIENT
  Age: 38 Year
  Sex: Female

DRUGS (2)
  1. CIPROFLOXACIN. [Suspect]
     Active Substance: CIPROFLOXACIN
  2. NIFEDIPINE. [Suspect]
     Active Substance: NIFEDIPINE

REACTIONS (1)
  - Exposure during pregnancy [None]
